FAERS Safety Report 5089290-2 (Version None)
Quarter: 2006Q3

REPORT INFORMATION
  Report Type: 
  Country: None (occurrence: None)
  Receive Date: 20060822
  Receipt Date: 20060803
  Transmission Date: 20061208
  Serious: Yes (Death, Other)
  Sender: FDA-Public Use
  Company Number: US200608000912

PATIENT
  Sex: Male

DRUGS (2)
  1. XIGRIS [Suspect]
     Dosage: INTRAVENOUS
     Route: 042
  2. HEPARIN SODIUM [Concomitant]

REACTIONS (1)
  - THROMBOSIS [None]
